FAERS Safety Report 9303153 (Version 1)
Quarter: 2013Q2

REPORT INFORMATION
  Report Type: Spontaneous
  Country: GB (occurrence: GB)
  Receive Date: 20130522
  Receipt Date: 20130522
  Transmission Date: 20140414
  Serious: Yes (Hospitalization)
  Sender: FDA-Public Use
  Company Number: GB-TEVA-405683ISR

PATIENT
  Age: 81 Year
  Sex: Male

DRUGS (8)
  1. ATENOLOL [Suspect]
     Dates: start: 19970101
  2. ATENOLOL [Suspect]
  3. ISOSORBIDE [Concomitant]
     Dates: start: 20010119
  4. ISOSORBIDE [Concomitant]
  5. ASPIRIN [Concomitant]
  6. RAMIPRIL [Concomitant]
  7. AMLODIPINE [Concomitant]
  8. PRAVASTATIN [Concomitant]

REACTIONS (3)
  - Circulatory collapse [Unknown]
  - Bradycardia [Unknown]
  - Dizziness [Unknown]
